FAERS Safety Report 5806732-2 (Version None)
Quarter: 2008Q3

REPORT INFORMATION
  Report Type: 
  Country: None (occurrence: None)
  Receive Date: 20080711
  Receipt Date: 20080710
  Transmission Date: 20090109
  Serious: Yes (Death, Other)
  Sender: FDA-Public Use
  Company Number: GB-RANBAXY-2007RR-09425

PATIENT

DRUGS (3)
  1. GABAPENTIN [Suspect]
     Indication: NEURALGIA
     Dosage: 900 MG, TID
     Route: 048
  2. GABAPENTIN [Suspect]
     Dosage: 1200 MG, TID
  3. OXYCODONE HCL [Suspect]
     Indication: NEURALGIA
     Dosage: 100 MG, PRN
     Route: 048

REACTIONS (6)
  - CONFUSIONAL STATE [None]
  - DEATH [None]
  - DISEASE PROGRESSION [None]
  - DRUG INTERACTION [None]
  - HALLUCINATION [None]
  - NEUROTOXICITY [None]
